FAERS Safety Report 13740276 (Version 2)
Quarter: 2017Q3

REPORT INFORMATION
  Report Type: Spontaneous
  Country: CA (occurrence: CA)
  Receive Date: 20170711
  Receipt Date: 20170720
  Transmission Date: 20171127
  Serious: Yes (Other)
  Sender: FDA-Public Use
  Company Number: CA-ORION CORPORATION ORION PHARMA-TREX2017-2024

PATIENT
  Sex: Female

DRUGS (1)
  1. METHOTREXATE (TRADE NAME UNKNOWN) [Suspect]
     Active Substance: METHOTREXATE
     Indication: RHEUMATOID ARTHRITIS
     Dosage: STRENGTH: 25 MG
     Route: 065
     Dates: start: 20120720, end: 2013

REACTIONS (5)
  - Headache [Unknown]
  - Hepatotoxicity [Unknown]
  - Nausea [Unknown]
  - Drug ineffective [Unknown]
  - Drug intolerance [Unknown]
